FAERS Safety Report 7562374-2 (Version None)
Quarter: 2011Q2

REPORT INFORMATION
  Report Type: 
  Country: None (occurrence: None)
  Receive Date: 20110622
  Receipt Date: 20110609
  Transmission Date: 20111010
  Serious: Yes (Hospitalization, Other)
  Sender: FDA-Public Use
  Company Number: US-ELI_LILLY_AND_COMPANY-US201102003032

PATIENT
  Sex: Female

DRUGS (11)
  1. METOPROLOL [Concomitant]
  2. FORTEO [Suspect]
     Dosage: 20 UG, QD
  3. XALATAN [Concomitant]
  4. FISH OIL [Concomitant]
  5. CALCIUM CARBONATE [Concomitant]
  6. MULTI-VITAMIN [Concomitant]
  7. FORTEO [Suspect]
     Dosage: 20 UG, QD
  8. FORTEO [Suspect]
     Indication: OSTEOPOROSIS
     Dosage: 20 UG, DAILY (1/D)
     Dates: start: 20110201
  9. ACTONEL [Concomitant]
  10. ASPIRIN [Concomitant]
  11. ICAPS [Concomitant]

REACTIONS (3)
  - PELVIC FRACTURE [None]
  - FALL [None]
  - INJECTION SITE PRURITUS [None]
